FAERS Safety Report 12640702 (Version 1)
Quarter: 2016Q3

REPORT INFORMATION
  Report Type: Spontaneous
  Country: US (occurrence: US)
  Receive Date: 20160810
  Receipt Date: 20160810
  Transmission Date: 20161109
  Serious: Yes (Hospitalization, Disabling, Other)
  Sender: FDA-Public Use
  Company Number: US-009507513-1106USA02745

PATIENT
  Sex: Female
  Weight: 93.44 kg

DRUGS (5)
  1. METHOTREXATE. [Suspect]
     Active Substance: METHOTREXATE
     Indication: RHEUMATOID ARTHRITIS
     Dates: start: 2006, end: 20110603
  2. FOSAMAX [Suspect]
     Active Substance: ALENDRONATE SODIUM
     Indication: OSTEOPENIA
  3. CLIMARA [Concomitant]
     Active Substance: ESTRADIOL
     Indication: HORMONE REPLACEMENT THERAPY
     Dates: start: 1997, end: 2008
  4. VITAMINS (UNSPECIFIED) [Concomitant]
     Active Substance: VITAMINS
     Indication: PRODUCT USED FOR UNKNOWN INDICATION
     Dates: start: 1996
  5. FOSAMAX [Suspect]
     Active Substance: ALENDRONATE SODIUM
     Indication: OSTEOPOROSIS
     Dosage: 70 MG, QW
     Route: 048
     Dates: start: 1998, end: 20081201

REACTIONS (53)
  - Femur fracture [Unknown]
  - Fall [Unknown]
  - Vitamin D deficiency [Unknown]
  - Rheumatoid arthritis [Not Recovered/Not Resolved]
  - Pain [Not Recovered/Not Resolved]
  - Hepatic enzyme increased [Unknown]
  - Major depression [Not Recovered/Not Resolved]
  - Colitis ulcerative [Not Recovered/Not Resolved]
  - Fatigue [Unknown]
  - Lower limb fracture [Unknown]
  - Pyrexia [Unknown]
  - Vitamin B complex deficiency [Unknown]
  - Tooth disorder [Unknown]
  - Pneumonia [Unknown]
  - Arthralgia [Unknown]
  - Systemic lupus erythematosus [Not Recovered/Not Resolved]
  - Raynaud^s phenomenon [Not Recovered/Not Resolved]
  - Anxiety disorder [Not Recovered/Not Resolved]
  - Arthritis enteropathic [Not Recovered/Not Resolved]
  - Foot fracture [Recovered/Resolved]
  - Menopause [Unknown]
  - Intervertebral disc degeneration [Unknown]
  - Haematuria [Unknown]
  - Fracture nonunion [Unknown]
  - Calcium deficiency [Unknown]
  - Migraine [Unknown]
  - Breakthrough pain [Unknown]
  - Urinary tract infection [Unknown]
  - Pain in extremity [Unknown]
  - Foot fracture [Unknown]
  - Tooth infection [Unknown]
  - Fracture delayed union [Recovered/Resolved]
  - Essential hypertension [Not Recovered/Not Resolved]
  - Fibromyalgia [Not Recovered/Not Resolved]
  - Poor quality sleep [Unknown]
  - Pneumonia [Unknown]
  - Hypokalaemia [Unknown]
  - Meniscus injury [Unknown]
  - Surgery [Unknown]
  - Surgery [Unknown]
  - Stress [Unknown]
  - Back pain [Not Recovered/Not Resolved]
  - Bone contusion [Unknown]
  - Fall [Unknown]
  - Fall [Unknown]
  - Gastrooesophageal reflux disease [Unknown]
  - Staphylococcal infection [Unknown]
  - Oedema [Unknown]
  - Malaise [Unknown]
  - Mental impairment [Unknown]
  - Gait disturbance [Unknown]
  - Joint effusion [Unknown]
  - Bronchitis [Unknown]

NARRATIVE: CASE EVENT DATE: 2001
